FAERS Safety Report 20956330 (Version 3)
Quarter: 2023Q1

REPORT INFORMATION
  Report Type: Report from Study
  Country: US (occurrence: US)
  Receive Date: 20220614
  Receipt Date: 20230111
  Transmission Date: 20230418
  Serious: Yes (Other)
  Sender: FDA-Public Use
  Company Number: US-GLAXOSMITHKLINE-US2022AMR076790

PATIENT

DRUGS (1)
  1. BELANTAMAB MAFODOTIN [Suspect]
     Active Substance: BELANTAMAB MAFODOTIN
     Indication: Plasma cell myeloma
     Dosage: UNK
     Dates: start: 20220120, end: 20220414

REACTIONS (10)
  - Punctate keratitis [Unknown]
  - Corneal opacity [Unknown]
  - Visual acuity reduced [Recovering/Resolving]
  - Keratopathy [Unknown]
  - Night blindness [Recovering/Resolving]
  - Photophobia [Recovering/Resolving]
  - Diplopia [Recovering/Resolving]
  - Dry eye [Recovering/Resolving]
  - Foreign body in eye [Recovering/Resolving]
  - Condition aggravated [Unknown]

NARRATIVE: CASE EVENT DATE: 20220427
